FAERS Safety Report 20712694 (Version 2)
Quarter: 2022Q2

REPORT INFORMATION
  Report Type: Report from Study
  Country: US (occurrence: US)
  Receive Date: 20220415
  Receipt Date: 20220628
  Transmission Date: 20220721
  Serious: Yes (Other)
  Sender: FDA-Public Use
  Company Number: US-ABBVIE-22K-163-4358836-00

PATIENT
  Age: 65 Year
  Sex: Female

DRUGS (1)
  1. RINVOQ [Suspect]
     Active Substance: UPADACITINIB
     Indication: Rheumatoid arthritis
     Route: 048
     Dates: start: 20211110, end: 20220610

REACTIONS (3)
  - Pituitary tumour [Recovered/Resolved]
  - Brain neoplasm [Not Recovered/Not Resolved]
  - Back disorder [Recovering/Resolving]

NARRATIVE: CASE EVENT DATE: 20220601
